FAERS Safety Report 16108927 (Version 2)
Quarter: 2019Q2

REPORT INFORMATION
  Report Type: Spontaneous
  Country: US (occurrence: US)
  Receive Date: 20190323
  Receipt Date: 20190620
  Transmission Date: 20190711
  Serious: No
  Sender: FDA-Public Use
  Company Number: US-THERAPEUTICSMD-2019TMD00267

PATIENT
  Age: 81 Year
  Sex: Female
  Weight: 68.93 kg

DRUGS (7)
  1. LEVOTHYROXINE. [Concomitant]
     Active Substance: LEVOTHYROXINE
  2. LOSARTAN. [Concomitant]
     Active Substance: LOSARTAN
  3. IMVEXXY [Suspect]
     Active Substance: ESTRADIOL
     Indication: URINARY TRACT INFECTION
     Dosage: 10 ?G, 1X/DAY BEFORE BEDTIME
     Route: 067
     Dates: start: 201810, end: 2018
  4. IMVEXXY [Suspect]
     Active Substance: ESTRADIOL
     Dosage: 10 ?G, 2X/WEEK BEFORE BED (MONDAY AND THURSDAY)
     Route: 067
     Dates: start: 2018
  5. SIMVASTATIN. [Concomitant]
     Active Substance: SIMVASTATIN
  6. METFORMIN [Concomitant]
     Active Substance: METFORMIN HYDROCHLORIDE
  7. MYRBETRIQ [Concomitant]
     Active Substance: MIRABEGRON

REACTIONS (3)
  - Drug hypersensitivity [Recovering/Resolving]
  - Off label use [Recovered/Resolved]
  - Lip exfoliation [Recovering/Resolving]

NARRATIVE: CASE EVENT DATE: 201810
